FAERS Safety Report 7916132-7 (Version None)
Quarter: 2011Q4

REPORT INFORMATION
  Report Type: 
  Country: None (occurrence: None)
  Receive Date: 20111116
  Receipt Date: 20111109
  Transmission Date: 20120403
  Serious: Yes (Hospitalization, Other)
  Sender: FDA-Public Use
  Company Number: NO-BIOGENIDEC-2011BI043083

PATIENT
  Age: 43 Year
  Sex: Female

DRUGS (2)
  1. CONTRACEPTIVES [Concomitant]
  2. TYSABRI [Suspect]
     Indication: RELAPSING-REMITTING MULTIPLE SCLEROSIS
     Route: 042
     Dates: start: 20090206

REACTIONS (1)
  - PULMONARY EMBOLISM [None]
